FAERS Safety Report 11942874 (Version 1)
Quarter: 2016Q1

REPORT INFORMATION
  Report Type: Spontaneous
  Country: US (occurrence: US)
  Receive Date: 20160125
  Receipt Date: 20160125
  Transmission Date: 20160526
  Serious: No
  Sender: FDA-Public Use
  Company Number: US-UNITED THERAPEUTICS-UNT-2015-008732

PATIENT
  Age: 61 Year
  Sex: Female
  Weight: 95.24 kg

DRUGS (12)
  1. REMODULIN [Suspect]
     Active Substance: TREPROSTINIL
     Dosage: 0.022 ?G/KG/MIN, CONTINUING
     Route: 058
  2. REMODULIN [Suspect]
     Active Substance: TREPROSTINIL
     Indication: PULMONARY HYPERTENSION
     Dosage: 0.001 ?G/KG/MIN, CONTINUING
     Route: 058
     Dates: start: 20150709
  3. REMODULIN [Suspect]
     Active Substance: TREPROSTINIL
     Dosage: 0.010 ?G/KG/MIN, CONTINUING
     Route: 058
  4. REMODULIN [Suspect]
     Active Substance: TREPROSTINIL
     Dosage: 0.0055  ?G/KG/MIN, CONTINUING
     Route: 058
  5. REMODULIN [Suspect]
     Active Substance: TREPROSTINIL
     Dosage: 0.002 ?G/KG/MIN, CONTINUING
     Route: 058
  6. TRACLEER [Concomitant]
     Active Substance: BOSENTAN
     Indication: PRODUCT USED FOR UNKNOWN INDICATION
  7. ADCIRCA [Concomitant]
     Active Substance: TADALAFIL
     Indication: PRODUCT USED FOR UNKNOWN INDICATION
  8. REMODULIN [Suspect]
     Active Substance: TREPROSTINIL
     Dosage: UNK
  9. REMODULIN [Suspect]
     Active Substance: TREPROSTINIL
     Dosage: UNK
     Route: 058
  10. REMODULIN [Suspect]
     Active Substance: TREPROSTINIL
     Dosage: 0.003 ?G/KG/MIN, CONTINUING
     Route: 058
  11. REMODULIN [Suspect]
     Active Substance: TREPROSTINIL
     Dosage: UNK
     Route: 058
  12. REMODULIN [Suspect]
     Active Substance: TREPROSTINIL
     Dosage: 0.007 ?G/KG/MIN, CONTINUING
     Route: 058

REACTIONS (28)
  - Chills [Unknown]
  - Abdominal pain [Unknown]
  - Infusion site infection [Unknown]
  - Condition aggravated [Recovering/Resolving]
  - Eye pain [Unknown]
  - Infusion site oedema [Unknown]
  - Localised oedema [Unknown]
  - Thrombosis in device [Unknown]
  - Restless legs syndrome [Not Recovered/Not Resolved]
  - Fatigue [Unknown]
  - Infusion site reaction [Unknown]
  - Infusion site haemorrhage [Unknown]
  - Drug dose omission [Unknown]
  - Dry skin [Unknown]
  - Incorrect dose administered [Unknown]
  - Pain in extremity [Unknown]
  - Vomiting [Unknown]
  - Nausea [Unknown]
  - Pain in jaw [Unknown]
  - Dysgeusia [Unknown]
  - Device issue [Unknown]
  - Device leakage [Unknown]
  - Oedema [Recovered/Resolved]
  - Burning sensation [Unknown]
  - Device dislocation [Unknown]
  - Infusion site pain [Unknown]
  - Headache [Unknown]
  - Infusion site erythema [Unknown]

NARRATIVE: CASE EVENT DATE: 2015
